FAERS Safety Report 8178558-9 (Version None)
Quarter: 2012Q1

REPORT INFORMATION
  Report Type: 
  Country: None (occurrence: None)
  Receive Date: 20120301
  Receipt Date: 20120222
  Transmission Date: 20120608
  Serious: Yes (Death, Other)
  Sender: FDA-Public Use
  Company Number: PH-BAXTER-2012BH005348

PATIENT
  Sex: Male

DRUGS (1)
  1. DIANEAL [Suspect]
     Indication: PERITONEAL DIALYSIS
     Route: 033
     Dates: start: 20090928, end: 20120214

REACTIONS (5)
  - DYSPNOEA [None]
  - OEDEMA [None]
  - MYOCARDIAL ISCHAEMIA [None]
  - CARDIO-RESPIRATORY ARREST [None]
  - MALAISE [None]
